FAERS Safety Report 8676195 (Version 2)
Quarter: 2013Q4

REPORT INFORMATION
  Report Type: Spontaneous
  Country: US (occurrence: US)
  Receive Date: 20120720
  Receipt Date: 20131101
  Transmission Date: 20140711
  Serious: No
  Sender: FDA-Public Use
  Company Number: US-009507513-1207USA001589

PATIENT
  Age: 37 Year
  Sex: Female

DRUGS (7)
  1. ZETIA [Suspect]
     Indication: BLOOD CHOLESTEROL
     Dosage: 10 MG, QD
     Route: 048
     Dates: start: 20120201
  2. HUMALOG [Concomitant]
  3. PRILOSEC [Concomitant]
  4. LISINOPRIL [Concomitant]
  5. PROPRANOLOL HYDROCHLORIDE [Concomitant]
  6. ORTHO TRI-CYCLEN [Concomitant]
  7. CYANOCOBALAMIN [Concomitant]

REACTIONS (1)
  - Drug screen negative [Unknown]
